FAERS Safety Report 20904834 (Version 1)
Quarter: 2022Q2

REPORT INFORMATION
  Report Type: Spontaneous
  Country: US (occurrence: US)
  Receive Date: 20220602
  Receipt Date: 20220602
  Transmission Date: 20220720
  Serious: No
  Sender: FDA-Public Use
  Company Number: US-KYOWAKIRIN-2022BKK008246

PATIENT

DRUGS (2)
  1. POTELIGEO [Suspect]
     Active Substance: MOGAMULIZUMAB-KPKC
     Indication: Product used for unknown indication
     Dosage: (1.0 MG/KG ONCE WEEKLY FOR CYCLE 1 (28 DAYS); DAYS 1 AND 15 OF SUBSEQUENT CYCLES)
     Route: 042
  2. VORINOSTAT [Suspect]
     Active Substance: VORINOSTAT
     Indication: Product used for unknown indication
     Dosage: 400 MG
     Route: 048

REACTIONS (1)
  - Drug eruption [Unknown]
